FAERS Safety Report 12170267 (Version 1)
Quarter: 2016Q1

REPORT INFORMATION
  Report Type: Spontaneous
  Country: US (occurrence: US)
  Receive Date: 20160311
  Receipt Date: 20160311
  Transmission Date: 20160526
  Serious: No
  Sender: FDA-Public Use
  Company Number: US-ASTRAZENECA-2016SE25663

PATIENT
  Age: 78 Year
  Sex: Female
  Weight: 59 kg

DRUGS (4)
  1. NEXIUM 24HR [Suspect]
     Active Substance: ESOMEPRAZOLE MAGNESIUM
     Indication: THROAT TIGHTNESS
     Dosage: 44.6 MG, 2X/DAY, 22.3MG CAPSULE, 2 CAPSULES EVERY MORNING AND EVERY NIGHT
     Route: 048
     Dates: start: 201508
  2. NEXIUM 24HR [Suspect]
     Active Substance: ESOMEPRAZOLE MAGNESIUM
     Indication: OESOPHAGEAL DISORDER
     Dosage: 44.6 MG, 2X/DAY, 22.3MG CAPSULE, 2 CAPSULES EVERY MORNING AND EVERY NIGHT
     Route: 048
     Dates: start: 201508
  3. NEXIUM 24HR [Suspect]
     Active Substance: ESOMEPRAZOLE MAGNESIUM
     Indication: DYSPHAGIA
     Dosage: 44.6 MG, 2X/DAY, 22.3MG CAPSULE, 2 CAPSULES EVERY MORNING AND EVERY NIGHT
     Route: 048
     Dates: start: 201508
  4. NEXIUM 24HR [Suspect]
     Active Substance: ESOMEPRAZOLE MAGNESIUM
     Indication: GASTROOESOPHAGEAL REFLUX DISEASE
     Dosage: 44.6 MG, 2X/DAY, 22.3MG CAPSULE, 2 CAPSULES EVERY MORNING AND EVERY NIGHT
     Route: 048
     Dates: start: 201508

REACTIONS (5)
  - Asthma [Unknown]
  - Oral fungal infection [Unknown]
  - Gastrointestinal disorder [Unknown]
  - Off label use [Unknown]
  - Nasopharyngitis [Unknown]
